FAERS Safety Report 5347253-3 (Version None)
Quarter: 2007Q2

REPORT INFORMATION
  Report Type: 
  Country: None (occurrence: None)
  Receive Date: 20070509
  Receipt Date: 20060710
  Transmission Date: 20071010
  Serious: Yes (Hospitalization)
  Sender: FDA-Public Use
  Company Number: 455037

PATIENT
  Sex: Male

DRUGS (2)
  1. FUZEON [Suspect]
     Indication: HIV INFECTION
     Dosage: 2 PER DAY
     Dates: start: 20050215
  2. CONCOMITANT UNSPECIFIED DRUGS (GENERIC UNKNOWN) [Concomitant]

REACTIONS (2)
  - ABDOMINAL PAIN UPPER [None]
  - INJECTION SITE MASS [None]
